FAERS Safety Report 8201551-4 (Version None)
Quarter: 2012Q1

REPORT INFORMATION
  Report Type: 
  Country: None (occurrence: None)
  Receive Date: 20120312
  Receipt Date: 20120306
  Transmission Date: 20120608
  Serious: Yes (Other)
  Sender: FDA-Public Use
  Company Number: ES-GLAXOSMITHKLINE-B0787638A

PATIENT
  Age: 69 Year
  Sex: Male
  Weight: 108 kg

DRUGS (1)
  1. ZANTAC [Suspect]
     Indication: PRODUCT USED FOR UNKNOWN INDICATION
     Dosage: 150MG PER DAY
     Route: 048
     Dates: start: 20120207, end: 20120215

REACTIONS (4)
  - HALLUCINATION [None]
  - INSOMNIA [None]
  - LIP OEDEMA [None]
  - DYSPNOEA [None]
